FAERS Safety Report 10166656 (Version 1)
Quarter: 2014Q2

REPORT INFORMATION
  Report Type: Spontaneous
  Country: HK (occurrence: None)
  Receive Date: 20140508
  Receipt Date: 20140508
  Transmission Date: 20141212
  Serious: Yes (Death)
  Sender: FDA-Public Use
  Company Number: FK201401605

PATIENT
  Age: 58 Year
  Sex: Female

DRUGS (5)
  1. HEPARIN [Suspect]
     Indication: CATHETER MANAGEMENT
     Dosage: 1000 IU/ML, ^LOADED AT THE A-PORT OF HEMODIALYSIS CATHETER^?
  2. ENOXAPARIN [Suspect]
     Indication: DEEP VEIN THROMBOSIS
  3. LISINOPRIL [Concomitant]
  4. METFORMIN [Concomitant]
  5. INSULIN ISOPHANE HUMAN (INSULIN HUMAN INJECTION, ISOPHANE) [Concomitant]

REACTIONS (6)
  - Heparin-induced thrombocytopenia [None]
  - Deep vein thrombosis [None]
  - Cerebral artery thrombosis [None]
  - Ischaemic stroke [None]
  - Haemodialysis [None]
  - Somnolence [None]
